FAERS Safety Report 22100081 (Version 7)
Quarter: 2023Q2

REPORT INFORMATION
  Report Type: Report from Study
  Country: BR (occurrence: BR)
  Receive Date: 20230315
  Receipt Date: 20230619
  Transmission Date: 20230721
  Serious: Yes (Other)
  Sender: FDA-Public Use
  Company Number: BR-JNJFOC-20230317758

PATIENT
  Age: 57 Year
  Sex: Male
  Weight: 80.7 kg

DRUGS (16)
  1. AMIVANTAMAB [Suspect]
     Active Substance: AMIVANTAMAB
     Indication: Non-small cell lung cancer
     Dosage: 25R VIAL; CYCLE 1 DAY 1; ALSO REPORTED AS 2240 ML  MOST RECENT DOSE ON 06-MAR-2023 ALSO REPORTED AS
     Route: 058
     Dates: start: 20230306
  2. GABAPENTIN [Concomitant]
     Active Substance: GABAPENTIN
     Indication: Back pain
     Route: 048
     Dates: start: 20230101, end: 20230307
  3. GABAPENTIN [Concomitant]
     Active Substance: GABAPENTIN
     Indication: Arthralgia
     Route: 048
     Dates: start: 20230315, end: 20230328
  4. CODEINE [Concomitant]
     Active Substance: CODEINE
     Indication: Back pain
     Route: 048
     Dates: start: 20230201, end: 20230314
  5. CODEINE [Concomitant]
     Active Substance: CODEINE
     Indication: Arthralgia
  6. DIPYRONE [Concomitant]
     Active Substance: DIPYRONE
     Indication: Back pain
     Route: 048
     Dates: start: 20230201, end: 20230328
  7. DIPYRONE [Concomitant]
     Active Substance: DIPYRONE
     Indication: Arthralgia
  8. MORPHINE [Concomitant]
     Active Substance: MORPHINE
     Indication: Arthralgia
     Route: 048
     Dates: start: 20230201, end: 20230314
  9. MORPHINE [Concomitant]
     Active Substance: MORPHINE
     Indication: Back pain
     Route: 048
     Dates: start: 20230315, end: 20230322
  10. MORPHINE [Concomitant]
     Active Substance: MORPHINE
     Route: 048
     Dates: start: 20230323, end: 20230328
  11. RIVAROXABAN [Concomitant]
     Active Substance: RIVAROXABAN
     Indication: Non-small cell lung cancer
     Route: 048
     Dates: start: 20230307
  12. BROMOPRIDE [Concomitant]
     Active Substance: BROMOPRIDE
     Indication: Dyspepsia
     Route: 048
     Dates: start: 20230315, end: 20230321
  13. CALCIUM CARBONATE\CHOLECALCIFEROL [Concomitant]
     Active Substance: CALCIUM CARBONATE\CHOLECALCIFEROL
     Indication: Prophylaxis
     Route: 048
     Dates: start: 20230321, end: 20230326
  14. CALCIUM CARBONATE\CHOLECALCIFEROL [Concomitant]
     Active Substance: CALCIUM CARBONATE\CHOLECALCIFEROL
     Indication: Hypocalcaemia
     Route: 048
     Dates: start: 20230327, end: 20230403
  15. CALCIUM CARBONATE\CHOLECALCIFEROL [Concomitant]
     Active Substance: CALCIUM CARBONATE\CHOLECALCIFEROL
     Route: 048
     Dates: start: 20230404, end: 20230417
  16. DOXYCYCLINE [Concomitant]
     Active Substance: DOXYCYCLINE
     Indication: Non-small cell lung cancer
     Route: 048
     Dates: start: 20230307, end: 20230403

REACTIONS (2)
  - Administration related reaction [Recovered/Resolved]
  - Rash [Recovered/Resolved]

NARRATIVE: CASE EVENT DATE: 20230306
